FAERS Safety Report 9173598 (Version 1)
Quarter: 2013Q1

REPORT INFORMATION
  Report Type: Spontaneous
  Country: JP (occurrence: None)
  Receive Date: 20130314
  Receipt Date: 20130314
  Transmission Date: 20140127
  Serious: Yes (Hospitalization)
  Sender: FDA-Public Use
  Company Number: TPA2013A02068

PATIENT
  Age: 88 Year
  Sex: Male

DRUGS (3)
  1. FEBURIC (FEBUXOSTAT) [Suspect]
     Indication: HYPERURICAEMIA
     Route: 048
     Dates: start: 20130217, end: 20130219
  2. ADALAT-CR [Suspect]
  3. CALBLOCK (AZELNIDIPINE) [Concomitant]

REACTIONS (6)
  - Rash [None]
  - Malaise [None]
  - Nausea [None]
  - Decreased appetite [None]
  - Dehydration [None]
  - Dizziness [None]
